FAERS Safety Report 6300283-7 (Version None)
Quarter: 2009Q3

REPORT INFORMATION
  Report Type: 
  Country: None (occurrence: None)
  Receive Date: 20090806
  Receipt Date: 20090727
  Transmission Date: 20100115
  Serious: Yes (Death)
  Sender: FDA-Public Use
  Company Number: GB-MERCK-0907GBR00099

PATIENT
  Age: 69 Year
  Sex: Male

DRUGS (6)
  1. INVANZ [Suspect]
     Indication: BACTERAEMIA
     Route: 042
  2. CEFTAZIDIME [Suspect]
     Indication: BACTERAEMIA
     Route: 065
  3. CIPROFLOXACIN [Suspect]
     Indication: BACTERAEMIA
     Route: 048
  4. SULFAMETHOXAZOLE [Suspect]
     Indication: BACTERAEMIA
     Route: 042
  5. TIGECYCLINE [Suspect]
     Indication: BACTERAEMIA
     Route: 042
  6. TRIMETHOPRIM [Suspect]
     Indication: BACTERAEMIA
     Route: 042

REACTIONS (18)
  - BACTERAEMIA [None]
  - CARDIAC VALVE DISEASE [None]
  - CHILLS [None]
  - DISEASE PROGRESSION [None]
  - ENDOCARDITIS [None]
  - ENDOTRACHEAL INTUBATION [None]
  - GENERAL PHYSICAL HEALTH DETERIORATION [None]
  - HEPATIC INFARCTION [None]
  - INTESTINAL ISCHAEMIA [None]
  - LIVER ABSCESS [None]
  - MULTI-ORGAN FAILURE [None]
  - PATHOGEN RESISTANCE [None]
  - PYREXIA [None]
  - RENAL ABSCESS [None]
  - RENAL INFARCT [None]
  - RESPIRATORY FAILURE [None]
  - SPLENIC ABSCESS [None]
  - SPLENIC INFARCTION [None]
